FAERS Safety Report 4893481-0 (Version None)
Quarter: 2006Q1

REPORT INFORMATION
  Report Type: 
  Country: None (occurrence: None)
  Receive Date: 20060127
  Receipt Date: 20050714
  Transmission Date: 20060701
  Serious: No
  Sender: FDA-Public Use
  Company Number: US-BRISTOL-MYERS SQUIBB COMPANY-13038237

PATIENT
  Age: 62 Year
  Sex: Female
  Weight: 59 kg

DRUGS (1)
  1. KENALOG-10 [Suspect]
     Indication: TENDONITIS
     Dates: start: 20040601

REACTIONS (1)
  - HAEMORRHAGE SUBCUTANEOUS [None]
